FAERS Safety Report 6614401-4 (Version None)
Quarter: 2010Q1

REPORT INFORMATION
  Report Type: 
  Country: None (occurrence: None)
  Receive Date: 20100304
  Receipt Date: 20100130
  Transmission Date: 20100710
  Serious: Yes (Other)
  Sender: FDA-Public Use
  Company Number: PHHY2010DE05600

PATIENT
  Sex: Female
  Weight: 77 kg

DRUGS (10)
  1. ALISKIREN ALI+ [Suspect]
     Indication: HYPERTENSION
     Dosage: 150 MG PER DAY
     Route: 048
     Dates: start: 20080101, end: 20091019
  2. ALISKIREN ALI+ [Suspect]
     Dosage: 300 MG PER DAY
     Route: 048
     Dates: start: 20081020
  3. BLOPRESS [Concomitant]
     Dosage: 32 MG/DAY
     Route: 048
     Dates: start: 20080101
  4. CARVEDILOL [Concomitant]
     Dosage: 25 MG/DAY
     Route: 048
     Dates: start: 20080101
  5. TOREM [Concomitant]
     Dosage: 10 MG/DAY
     Route: 048
     Dates: start: 20080101
  6. DOXAZOSIN MESYLATE [Concomitant]
     Dosage: 2 MG/DAY
     Route: 048
     Dates: start: 20080101
  7. ACETYLSALICYLIC ACID [Concomitant]
     Dosage: 100 MG/DAY
     Route: 048
     Dates: start: 20080101
  8. PLAVIX [Concomitant]
     Dosage: 75 MG/DAY
     Route: 048
     Dates: start: 20080328
  9. ZOCOR [Concomitant]
     Dosage: 40 MG/DAY
     Route: 048
     Dates: start: 20080101
  10. LEVOTHYROXINE SODIUM [Concomitant]
     Dosage: 0.25 MG/DAY
     Route: 048
     Dates: start: 20080101

REACTIONS (8)
  - ANGINA PECTORIS [None]
  - DYSPNOEA [None]
  - ELECTROCARDIOGRAM QRS COMPLEX PROLONGED [None]
  - ELECTROCARDIOGRAM QT PROLONGED [None]
  - HAEMOGLOBIN DECREASED [None]
  - HEART RATE DECREASED [None]
  - IMPLANTABLE DEFIBRILLATOR INSERTION [None]
  - LEFT VENTRICULAR HYPERTROPHY [None]
